FAERS Safety Report 4833658-3 (Version None)
Quarter: 2005Q4

REPORT INFORMATION
  Report Type: 
  Country: None (occurrence: None)
  Receive Date: 20051116
  Receipt Date: 20051021
  Transmission Date: 20060501
  Serious: Yes (Other)
  Sender: FDA-Public Use
  Company Number: 2005145556

PATIENT
  Age: 81 Year
  Sex: Female

DRUGS (5)
  1. MACUGEN [Suspect]
     Indication: MACULAR DEGENERATION
     Dosage: 0.3 MG (0.3 MG, 1 IN 6 WK), INTRAVITREOUS
     Dates: start: 20050409, end: 20050915
  2. LIPITOR [Concomitant]
  3. CELEBREX (CELEXOCIB) [Concomitant]
  4. ASPIRIN [Concomitant]
  5. FOSAMAX [Concomitant]

REACTIONS (1)
  - EYE HAEMORRHAGE [None]
